FAERS Safety Report 18051022 (Version 2)
Quarter: 2021Q2

REPORT INFORMATION
  Report Type: Report from Study
  Country: JP (occurrence: JP)
  Receive Date: 20200721
  Receipt Date: 20210419
  Transmission Date: 20210717
  Serious: Yes (Other)
  Sender: FDA-Public Use
  Company Number: JP-PFIZER INC-2020274522

PATIENT

DRUGS (6)
  1. GEMCITABINE HYDROCHLORIDE. [Suspect]
     Active Substance: GEMCITABINE HYDROCHLORIDE
     Indication: METASTASES TO PERITONEUM
     Dosage: 800 MG/M2, CYCLIC (ON DAYS 1, 8 AND 15, FOLLOWED BY 1 WEEK OF REST/REPEATED EVERY 4 WEEKS)
     Route: 042
  2. GEMCITABINE HYDROCHLORIDE. [Suspect]
     Active Substance: GEMCITABINE HYDROCHLORIDE
     Indication: PANCREATIC CARCINOMA
  3. NAB?PACLITAXEL [Suspect]
     Active Substance: PACLITAXEL
     Indication: METASTASES TO PERITONEUM
     Dosage: 100 MG/M2, CYCLIC (ON DAYS 1, 8 AND 15, FOLLOWED BY 1 WEEK OF REST/REPEATED EVERY 4 WEEKS)
     Route: 042
  4. PACLITAXEL. [Suspect]
     Active Substance: PACLITAXEL
     Indication: PANCREATIC CARCINOMA
  5. NAB?PACLITAXEL [Suspect]
     Active Substance: PACLITAXEL
     Indication: PANCREATIC CARCINOMA
  6. PACLITAXEL. [Suspect]
     Active Substance: PACLITAXEL
     Indication: METASTASES TO PERITONEUM
     Dosage: 20 MG/M2, CYCLIC (ON DAYS 1, 8 AND 15, FOLLOWED BY 1 WEEK OF REST/REPEATED EVERY 4 WEEKS)
     Route: 033

REACTIONS (2)
  - Leukopenia [Unknown]
  - Neutropenia [Unknown]
